FAERS Safety Report 4682877-8 (Version None)
Quarter: 2005Q2

REPORT INFORMATION
  Report Type: 
  Country: None (occurrence: None)
  Receive Date: 20050531
  Receipt Date: 20050224
  Transmission Date: 20051028
  Serious: Yes (Hospitalization, Other)
  Sender: FDA-Public Use
  Company Number: 200419281US

PATIENT
  Age: 57 Year
  Sex: Male
  Weight: 81.8 kg

DRUGS (12)
  1. LOVENOX [Suspect]
     Indication: CARDIAC VALVE DISEASE
     Dosage: 80 MG Q12H INJ
     Dates: start: 20041113, end: 20041115
  2. LOVENOX [Suspect]
     Indication: HERNIA REPAIR
     Dosage: 80 MG Q12H INJ
     Dates: start: 20041113, end: 20041115
  3. WARFARIN SODIUM [Concomitant]
  4. HIGH BLOOD PRESSURE MEDICATION [Concomitant]
  5. HIGH CHOLESTEROL MEDICATION [Concomitant]
  6. PANTOPRAZOLE SODIUM [Concomitant]
  7. MICARDIS [Concomitant]
  8. DEPAKOTE [Concomitant]
  9. ALLOPURINOL [Concomitant]
  10. LOVASTATIN [Concomitant]
  11. PANTOPRAZOLE SODIUM [Concomitant]
  12. ATENOLOL [Concomitant]

REACTIONS (4)
  - HYPERHIDROSIS [None]
  - HYPOTENSION [None]
  - OPERATIVE HAEMORRHAGE [None]
  - PALLOR [None]
